FAERS Safety Report 7980165-5 (Version None)
Quarter: 2011Q4

REPORT INFORMATION
  Report Type: 
  Country: None (occurrence: None)
  Receive Date: 20111212
  Receipt Date: 20111129
  Transmission Date: 20120403
  Serious: Yes (Hospitalization)
  Sender: FDA-Public Use
  Company Number: TCI2011A05802

PATIENT
  Age: 72 Year
  Sex: Male

DRUGS (33)
  1. SEISHOKU OTSUKA (SODIUM CHLORIDE) [Concomitant]
  2. LEVOFLOXACIN [Concomitant]
  3. LANSOPRAZOLE [Suspect]
     Indication: GASTROINTESTINAL HAEMORRHAGE
     Dosage: 30 MG (30 MG, 1 IN 1 D)
     Route: 048
     Dates: start: 20110614, end: 20110915
  4. FLAVITAN (FLAVINE ADENINE DINUCLEOTIDE) [Concomitant]
  5. VITAMIN C TOWA (ASCORBIC ACID) [Concomitant]
  6. PACETCOOL (CEFOTIAM HYDROCHLORIDE) [Concomitant]
  7. LACTEC (SODIUM LACTATE, POTASSIUM CHLORIDE, SODIUM CHLORIDE, CALCIUM C [Concomitant]
  8. WARFARIN POTASSIUM [Concomitant]
  9. GRAMALIL (TIAPRIDE HYDROCHLORIDE) [Concomitant]
  10. RISPERDAL [Concomitant]
  11. DEPAKENE [Concomitant]
  12. SOLACET D (GLUCOSE, SODIUM CHLORIDE COMPOUND INJECTION) [Concomitant]
  13. MUCOSTA (REBAMIPIDE) [Concomitant]
  14. LANSOPRAZOLE [Suspect]
     Indication: GASTROINTESTINAL HAEMORRHAGE
     Dosage: 60 MG (30 MG, 2 IN 1 D)
     Route: 042
     Dates: start: 20110608, end: 20110613
  15. MIDAZOLAM HCL [Concomitant]
  16. SUCRALFATE [Concomitant]
  17. DESYREL [Concomitant]
  18. SELENICA R (VALPROATE SODIUM) [Concomitant]
  19. SYMMETREL [Concomitant]
  20. TRANEXAMIC ACID [Concomitant]
  21. REPTILASE (HAEMOCOAGULASE) [Concomitant]
  22. SOLDEM 3A (SODIUM LACTATE, POTASSIUM CHLORIDE, SODIUM CHLORIDE, CARBOH [Concomitant]
  23. HEPAFLUSH (HEPARIN SODIUM) [Concomitant]
  24. NEOLAMIN 3B (PYRIDOXAL PHOSPHATE, THIAMINE DISULFIDE, HYDROXOCOBALAMIN [Concomitant]
  25. BFLUID (MIXED AMINO ACID/CARBOHYDRATE/ELECTORLYATE/VITAMIN COMBINED DR [Concomitant]
  26. GASTROM (ECABET MONOSODIUM) [Concomitant]
  27. ROHYPNOL (FLUNITRAZEPAM) [Concomitant]
  28. ATARAX [Concomitant]
  29. FLUMAZENIL [Concomitant]
  30. NIZORAL [Concomitant]
  31. ADONA (CARBAZOCHROME SODIUM SULFONATE) [Concomitant]
  32. PENTAZOCINE LACTATE [Concomitant]
  33. HISHIDARIN (PROTIRELIN TARTRATE) [Concomitant]

REACTIONS (8)
  - BRAIN CONTUSION [None]
  - HAEMORRHAGE [None]
  - PNEUMONIA ASPIRATION [None]
  - POST PROCEDURAL COMPLICATION [None]
  - NORMAL PRESSURE HYDROCEPHALUS [None]
  - GASTRIC ULCER HAEMORRHAGE [None]
  - INAPPROPRIATE ANTIDIURETIC HORMONE SECRETION [None]
  - ANAEMIA [None]
